FAERS Safety Report 12243358 (Version 1)
Quarter: 2016Q2

REPORT INFORMATION
  Report Type: Spontaneous
  Country: ES (occurrence: ES)
  Receive Date: 20160406
  Receipt Date: 20160406
  Transmission Date: 20160815
  Serious: Yes (Other)
  Sender: FDA-Public Use
  Company Number: ES-009507513-1604ESP000158

PATIENT
  Age: 58 Year
  Sex: Male

DRUGS (2)
  1. VIEKIRAX [Suspect]
     Active Substance: OMBITASVIR\PARITAPREVIR\RITONAVIR
     Indication: HEPATITIS C
     Dosage: 2 DF, QD
     Route: 048
     Dates: start: 20160128, end: 20160128
  2. REBETOL [Suspect]
     Active Substance: RIBAVIRIN
     Indication: HEPATITIS C
     Dosage: 3 TABLETS / 12 HOURS
     Route: 048
     Dates: start: 20160128, end: 20160128

REACTIONS (3)
  - Hyperbilirubinaemia [Unknown]
  - Anaemia [Unknown]
  - Rash macular [Unknown]

NARRATIVE: CASE EVENT DATE: 20160212
